FAERS Safety Report 5018986-3 (Version None)
Quarter: 2006Q2

REPORT INFORMATION
  Report Type: 
  Country: None (occurrence: None)
  Receive Date: 20060606
  Receipt Date: 20060601
  Transmission Date: 20061013
  Serious: Yes (Other)
  Sender: FDA-Public Use
  Company Number: US-GLAXOSMITHKLINE-A0607583A

PATIENT
  Age: 61 Year
  Sex: Male

DRUGS (4)
  1. AVANDIA [Suspect]
     Dosage: 2MG PER DAY
     Route: 048
     Dates: start: 20040101
  2. AVAPRO [Concomitant]
  3. PLAVIX [Concomitant]
  4. LANTUS [Concomitant]

REACTIONS (3)
  - DELUSION [None]
  - SUICIDAL IDEATION [None]
  - THINKING ABNORMAL [None]
